FAERS Safety Report 25772716 (Version 1)
Quarter: 2025Q3

REPORT INFORMATION
  Report Type: Spontaneous
  Country: EU (occurrence: EU)
  Receive Date: 20250908
  Receipt Date: 20250908
  Transmission Date: 20251020
  Serious: Yes (Life-Threatening, Hospitalization, Other)
  Sender: BIOGEN
  Company Number: EU-BIOGEN-2025BI01323103

PATIENT
  Age: 54 Year
  Sex: Male
  Weight: 82 kg

DRUGS (8)
  1. QALSODY [Suspect]
     Active Substance: TOFERSEN
     Indication: Amyotrophic lateral sclerosis
     Route: 050
  2. RILUZOLE [Concomitant]
     Active Substance: RILUZOLE
     Indication: Amyotrophic lateral sclerosis
     Route: 050
  3. PREGABALIN [Concomitant]
     Active Substance: PREGABALIN
     Indication: Pain
     Route: 050
  4. DULOXETINE [Concomitant]
     Active Substance: DULOXETINE
     Indication: Pain
     Dosage: INTERVAL-LIKE APPROX. 2-3 YEARS DAILY DOSE: 60 MG EVERY 1 DAY
     Route: 050
  5. CANNABIS SATIVA FLOWERING TOP [Concomitant]
     Active Substance: CANNABIS SATIVA FLOWERING TOP
     Indication: Pain
     Route: 050
  6. TERFENADINE [Concomitant]
     Active Substance: TERFENADINE
     Indication: Muscle spasms
     Route: 050
  7. PANTOPRAZOLE [Concomitant]
     Active Substance: PANTOPRAZOLE
     Indication: Product used for unknown indication
     Route: 050
  8. PREDNISOLONE ACETATE [Concomitant]
     Active Substance: PREDNISOLONE ACETATE
     Indication: Product used for unknown indication
     Route: 050

REACTIONS (3)
  - Meningitis aseptic [Recovered/Resolved]
  - Hydrocephalus [Recovered/Resolved]
  - CSF white blood cell count increased [Recovered/Resolved]

NARRATIVE: CASE EVENT DATE: 20250327
